FAERS Safety Report 10061689 (Version 1)
Quarter: 2014Q2

REPORT INFORMATION
  Report Type: Spontaneous
  Country: US (occurrence: US)
  Receive Date: 20140407
  Receipt Date: 20140407
  Transmission Date: 20141212
  Serious: No
  Sender: FDA-Public Use
  Company Number: US-TARO-2013P1019575

PATIENT
  Age: 83 Year
  Sex: Male
  Weight: 58.97 kg

DRUGS (2)
  1. FLUOROURACIL TOPICAL CREAM USP 5% [Suspect]
     Indication: ACTINIC KERATOSIS
     Route: 061
     Dates: start: 20130909, end: 20130918
  2. TESTOSTERONE CREAM [Concomitant]
     Route: 061

REACTIONS (2)
  - Application site haemorrhage [Not Recovered/Not Resolved]
  - Skin abrasion [Not Recovered/Not Resolved]
